FAERS Safety Report 10636273 (Version 8)
Quarter: 2016Q4

REPORT INFORMATION
  Report Type: Report from Study
  Country: CA (occurrence: CA)
  Receive Date: 20141206
  Receipt Date: 20161110
  Transmission Date: 20170206
  Serious: Yes (Hospitalization, Other)
  Sender: FDA-Public Use
  Company Number: CA-ROCHE-1462731

PATIENT
  Age: 59 Year
  Sex: Female
  Weight: 77.18 kg

DRUGS (14)
  1. DIPHENHYDRAMINE HCL [Concomitant]
     Active Substance: DIPHENHYDRAMINE HYDROCHLORIDE
     Route: 048
     Dates: start: 20140930
  2. METHYLPREDNISOLONE. [Concomitant]
     Active Substance: METHYLPREDNISOLONE
     Route: 042
     Dates: start: 20140826
  3. NORVASC [Concomitant]
     Active Substance: AMLODIPINE BESYLATE
  4. IMURAN [Concomitant]
     Active Substance: AZATHIOPRINE
  5. RITUXAN [Suspect]
     Active Substance: RITUXIMAB
     Indication: PEMPHIGUS
     Route: 042
     Dates: start: 20140826
  6. RITUXAN [Suspect]
     Active Substance: RITUXIMAB
     Dosage: 1 DOSE
     Route: 042
     Dates: start: 20160329
  7. RITUXAN [Suspect]
     Active Substance: RITUXIMAB
     Dosage: 1 DOSE
     Route: 042
     Dates: start: 20160520
  8. PREDNISONE. [Suspect]
     Active Substance: PREDNISONE
     Indication: PRODUCT USED FOR UNKNOWN INDICATION
     Route: 065
  9. DIPHENHYDRAMINE HCL [Concomitant]
     Active Substance: DIPHENHYDRAMINE HYDROCHLORIDE
     Route: 048
     Dates: start: 20140826, end: 20140922
  10. ACETAMINOPHEN. [Concomitant]
     Active Substance: ACETAMINOPHEN
     Route: 048
     Dates: start: 20140826, end: 20141014
  11. ACETAMINOPHEN. [Concomitant]
     Active Substance: ACETAMINOPHEN
     Route: 048
     Dates: start: 20141222, end: 20150805
  12. ATENOLOL. [Concomitant]
     Active Substance: ATENOLOL
  13. IMMUNOGLOBULIN G [Concomitant]
     Active Substance: HUMAN IMMUNOGLOBULIN G
  14. RITUXAN [Suspect]
     Active Substance: RITUXIMAB
     Dosage: 1 DOSE
     Route: 042
     Dates: start: 20160506

REACTIONS (22)
  - Faeces discoloured [Not Recovered/Not Resolved]
  - Constipation [Not Recovered/Not Resolved]
  - Eyelid ptosis [Not Recovered/Not Resolved]
  - B-lymphocyte count decreased [Unknown]
  - Osteoporosis [Unknown]
  - Blood pressure diastolic increased [Unknown]
  - Faecaloma [Unknown]
  - Pemphigus [Unknown]
  - Hypertension [Unknown]
  - Abdominal pain [Not Recovered/Not Resolved]
  - Off label use [Unknown]
  - Cataract [Not Recovered/Not Resolved]
  - Back pain [Not Recovered/Not Resolved]
  - Weight increased [Unknown]
  - Dry mouth [Not Recovered/Not Resolved]
  - Spinal fracture [Unknown]
  - Fall [Unknown]
  - Burning sensation [Not Recovered/Not Resolved]
  - Insomnia [Not Recovered/Not Resolved]
  - Underdose [Unknown]
  - Spinal fracture [Unknown]
  - Mobility decreased [Unknown]

NARRATIVE: CASE EVENT DATE: 201409
